FAERS Safety Report 23987018 (Version 6)
Quarter: 2025Q3

REPORT INFORMATION
  Report Type: Spontaneous
  Country: US (occurrence: US)
  Receive Date: 20240618
  Receipt Date: 20250711
  Transmission Date: 20251020
  Serious: Yes (Hospitalization, Other)
  Sender: NOVARTIS
  Company Number: US-002147023-NVSC2024US123387

PATIENT
  Age: 75 Year
  Sex: Female

DRUGS (4)
  1. LETROZOLE [Suspect]
     Active Substance: LETROZOLE
     Indication: Breast cancer metastatic
     Route: 065
     Dates: start: 20200108
  2. LETROZOLE [Suspect]
     Active Substance: LETROZOLE
     Dosage: 2.5 MG, QD
     Route: 065
     Dates: start: 20200801
  3. IBRANCE [Suspect]
     Active Substance: PALBOCICLIB
     Indication: Breast cancer metastatic
     Route: 048
     Dates: start: 202001
  4. IBRANCE [Suspect]
     Active Substance: PALBOCICLIB
     Route: 065
     Dates: start: 20200801

REACTIONS (45)
  - Necrotising fasciitis [Unknown]
  - Neoplasm malignant [Unknown]
  - Diabetes mellitus [Unknown]
  - Recurrent cancer [Unknown]
  - Arthralgia [Not Recovered/Not Resolved]
  - Back pain [Not Recovered/Not Resolved]
  - Second primary malignancy [Unknown]
  - Blood glucose increased [Not Recovered/Not Resolved]
  - Rash erythematous [Not Recovered/Not Resolved]
  - Blood calcium increased [Not Recovered/Not Resolved]
  - Orthostatic hypotension [Not Recovered/Not Resolved]
  - Amnesia [Unknown]
  - Fatigue [Not Recovered/Not Resolved]
  - Rash [Not Recovered/Not Resolved]
  - Insomnia [Not Recovered/Not Resolved]
  - Eating disorder [Not Recovered/Not Resolved]
  - Headache [Not Recovered/Not Resolved]
  - Tremor [Not Recovered/Not Resolved]
  - Crying [Not Recovered/Not Resolved]
  - Weight decreased [Not Recovered/Not Resolved]
  - Visual impairment [Not Recovered/Not Resolved]
  - Asthenia [Not Recovered/Not Resolved]
  - Dyspnoea [Not Recovered/Not Resolved]
  - Alopecia [Recovered/Resolved]
  - Underweight [Unknown]
  - Movement disorder [Not Recovered/Not Resolved]
  - Blood creatinine increased [Not Recovered/Not Resolved]
  - Hypoaesthesia [Not Recovered/Not Resolved]
  - Gait disturbance [Not Recovered/Not Resolved]
  - Pruritus [Not Recovered/Not Resolved]
  - Decreased appetite [Not Recovered/Not Resolved]
  - Aphonia [Not Recovered/Not Resolved]
  - Renal disorder [Unknown]
  - Renal cyst [Unknown]
  - Arthritis [Unknown]
  - Peripheral swelling [Not Recovered/Not Resolved]
  - Lipoma [Recovered/Resolved]
  - Anhedonia [Not Recovered/Not Resolved]
  - Gallbladder disorder [Unknown]
  - Vomiting [Recovered/Resolved]
  - Pain [Not Recovered/Not Resolved]
  - Chest pain [Unknown]
  - Oral pain [Unknown]
  - Oesophagitis [Unknown]
  - Product dose omission issue [Unknown]

NARRATIVE: CASE EVENT DATE: 20200101
